FAERS Safety Report 5518336-X (Version None)
Quarter: 2007Q4

REPORT INFORMATION
  Report Type: 
  Country: None (occurrence: None)
  Receive Date: 20071113
  Receipt Date: 20071113
  Transmission Date: 20080405
  Serious: Yes (Hospitalization)
  Sender: FDA-Public Use
  Company Number: None

PATIENT
  Age: 77 Year
  Sex: Male

DRUGS (4)
  1. METHOTREXATE [Suspect]
     Indication: LARGE GRANULAR LYMPHOCYTOSIS
     Dosage: 20 MG WEEKLY PO  (DURATION: APPROXIMATELY 6 WKS PTA)
     Route: 048
  2. FAMICLOVIR [Concomitant]
  3. PREDNISONE TAB [Concomitant]
  4. PREVACID [Concomitant]

REACTIONS (4)
  - ANOREXIA [None]
  - COUGH [None]
  - PYREXIA [None]
  - STOMATITIS [None]
